FAERS Safety Report 14333245 (Version 12)
Quarter: 2019Q3

REPORT INFORMATION
  Report Type: Spontaneous
  Country: FR (occurrence: FR)
  Receive Date: 20171228
  Receipt Date: 20190806
  Transmission Date: 20191004
  Serious: Yes (Other)
  Sender: FDA-Public Use
  Company Number: FR-SA-2017SA264463

PATIENT
  Age: 58 Year
  Sex: Male

DRUGS (11)
  1. KARDEGIC [Suspect]
     Active Substance: ASPIRIN DL-LYSINE
     Indication: PROPHYLAXIS
     Dosage: 1 DF,UNK
     Route: 048
     Dates: start: 20130201
  2. ESOMEPRAZOLE MAGNESIUM TRIHYDRATE [Suspect]
     Active Substance: ESOMEPRAZOLE MAGNESIUM
     Indication: PROPHYLAXIS
     Dosage: 20 MG,UNK
     Route: 048
     Dates: start: 20160426
  3. METFORMIN HYDROCHLORIDE. [Suspect]
     Active Substance: METFORMIN HYDROCHLORIDE
     Indication: DIABETES MELLITUS
     Dosage: 1000 MG,UNK
     Route: 048
     Dates: start: 20160301
  4. EUCREAS [Suspect]
     Active Substance: METFORMIN HYDROCHLORIDE\VILDAGLIPTIN
     Indication: DIABETES MELLITUS
     Dosage: 2 DF,UNK
     Route: 048
     Dates: start: 20160301
  5. GLIMEPIRIDE. [Suspect]
     Active Substance: GLIMEPIRIDE
     Indication: DIABETES MELLITUS
     Dosage: 4 MG,UNK
     Route: 048
     Dates: start: 20150301
  6. VICTAN [Suspect]
     Active Substance: ETHYL LOFLAZEPATE
     Indication: ANXIETY
     Dosage: 2 MG,UNK
     Route: 048
     Dates: start: 20040501
  7. RAMIPRIL. [Suspect]
     Active Substance: RAMIPRIL
     Indication: HYPERTENSION
     Dosage: .5 DF,UNK
     Route: 048
     Dates: start: 20140701
  8. TERCIAN [Suspect]
     Active Substance: CYAMEMAZINE
     Indication: DEPRESSION
     Dosage: 112.5 MG,UNK
     Route: 048
     Dates: start: 20040301
  9. QUETIAPINE FUMARATE. [Suspect]
     Active Substance: QUETIAPINE FUMARATE
     Indication: DEPRESSION
     Dosage: 3 DF,UNK
     Route: 048
     Dates: start: 20120201
  10. EZETIMIBE/SIMVASTATIN [Suspect]
     Active Substance: EZETIMIBE\SIMVASTATIN
     Indication: DYSLIPIDAEMIA
     Dosage: 1 DF,UNK
     Route: 048
     Dates: start: 20120501
  11. ANAFRANIL [Suspect]
     Active Substance: CLOMIPRAMINE HYDROCHLORIDE
     Indication: DEPRESSION
     Dosage: 75 MG,UNK
     Route: 048
     Dates: start: 20140301

REACTIONS (1)
  - Pericarditis [Not Recovered/Not Resolved]

NARRATIVE: CASE EVENT DATE: 20170920
